FAERS Safety Report 9850088 (Version 2)
Quarter: 2014Q1

REPORT INFORMATION
  Report Type: Spontaneous
  Country: DE (occurrence: DE)
  Receive Date: 20140128
  Receipt Date: 20140219
  Transmission Date: 20141002
  Serious: Yes (Other)
  Sender: FDA-Public Use
  Company Number: PHHY2014DE009458

PATIENT
  Sex: Female
  Weight: 80 kg

DRUGS (2)
  1. GILENYA [Suspect]
     Indication: MULTIPLE SCLEROSIS
     Dosage: 0.5 MG, QD
     Route: 048
     Dates: start: 20131120, end: 20131220
  2. ORAL CONTRACEPTIVE NOS [Concomitant]

REACTIONS (2)
  - Angioedema [Recovered/Resolved]
  - Face oedema [Recovered/Resolved]
